FAERS Safety Report 23548440 (Version 2)
Quarter: 2024Q1

REPORT INFORMATION
  Report Type: Spontaneous
  Country: US (occurrence: US)
  Receive Date: 20240221
  Receipt Date: 20240304
  Transmission Date: 20240410
  Serious: Yes (Other)
  Sender: FDA-Public Use
  Company Number: US-BAYER-2024A025281

PATIENT
  Age: 43 Year
  Sex: Male

DRUGS (2)
  1. KOVALTRY [Suspect]
     Active Substance: ANTIHEMOPHILIC FACTOR, HUMAN RECOMBINANT
     Dosage: 4900 IU, PRN
     Route: 042
  2. KOVALTRY [Suspect]
     Active Substance: ANTIHEMOPHILIC FACTOR, HUMAN RECOMBINANT
     Dosage: 4950 IU, QD FOR 7 DAYS

REACTIONS (6)
  - Haemorrhage [None]
  - Pain in extremity [None]
  - Peripheral swelling [None]
  - Ecchymosis [None]
  - Venous occlusion [None]
  - Haematoma [None]

NARRATIVE: CASE EVENT DATE: 20240207
